FAERS Safety Report 24201762 (Version 1)
Quarter: 2024Q3

REPORT INFORMATION
  Report Type: Spontaneous
  Country: US (occurrence: US)
  Receive Date: 20240812
  Receipt Date: 20240812
  Transmission Date: 20241017
  Serious: No
  Sender: PFIZER
  Company Number: US-PFIZER INC-PV202400103048

PATIENT
  Age: 68 Year
  Sex: Male

DRUGS (2)
  1. PAXLOVID [Interacting]
     Active Substance: NIRMATRELVIR\RITONAVIR
     Indication: COVID-19 treatment
     Dosage: UNK
  2. TEGRETOL [Interacting]
     Active Substance: CARBAMAZEPINE
     Dosage: UNK

REACTIONS (4)
  - Contraindicated product administered [Unknown]
  - Drug interaction [Unknown]
  - Dysarthria [Unknown]
  - Slow speech [Unknown]
